FAERS Safety Report 7829461-2 (Version None)
Quarter: 2011Q4

REPORT INFORMATION
  Report Type: 
  Country: None (occurrence: None)
  Receive Date: 20111020
  Receipt Date: 20111017
  Transmission Date: 20120403
  Serious: Yes (Hospitalization)
  Sender: FDA-Public Use
  Company Number: US-B.I. PHARMACEUTICALS,INC./RIDGEFIELD-2011-BP-07496BP

PATIENT
  Sex: Male

DRUGS (16)
  1. PLAVIX [Concomitant]
     Indication: STENT PLACEMENT
  2. LASIX [Concomitant]
     Indication: HYPERTENSION
  3. FISH OIL [Concomitant]
     Indication: ATRIAL FIBRILLATION
  4. LOPID [Concomitant]
     Indication: BLOOD CHOLESTEROL INCREASED
  5. LOPRESSOR [Concomitant]
     Indication: HYPERTENSION
     Dosage: 25 MG
     Route: 048
     Dates: start: 20110901
  6. DIGOXIN [Concomitant]
     Indication: HYPERTENSION
  7. LISINOPRIL [Concomitant]
     Indication: HYPERTENSION
     Dosage: 20 MG
     Route: 048
     Dates: start: 19900101
  8. NIACIN [Concomitant]
     Indication: BLOOD CHOLESTEROL INCREASED
     Route: 048
     Dates: start: 20110601
  9. CARDIZEM [Concomitant]
     Indication: HYPERTENSION
     Route: 048
     Dates: start: 20110101
  10. NOVOLIN R [Concomitant]
     Indication: DIABETES MELLITUS
     Route: 058
     Dates: start: 20110801
  11. PRADAXA [Suspect]
     Indication: ANTICOAGULANT THERAPY
     Dosage: 300 MG
     Route: 048
     Dates: start: 20110101, end: 20110904
  12. FISH OIL [Concomitant]
     Indication: PROPHYLAXIS
     Dosage: 9600 MG
     Route: 048
     Dates: start: 20080101, end: 20110901
  13. METOPROLOL TARTRATE [Concomitant]
     Indication: HYPERTENSION
  14. LOPID [Concomitant]
     Indication: BLOOD TRIGLYCERIDES INCREASED
     Route: 048
     Dates: start: 19900101
  15. NOVOLIN N [Concomitant]
     Indication: DIABETES MELLITUS
     Route: 058
     Dates: start: 20110801
  16. PRADAXA [Suspect]
     Indication: ATRIAL FIBRILLATION

REACTIONS (10)
  - MOUTH HAEMORRHAGE [None]
  - ANAEMIA [None]
  - OEDEMA PERIPHERAL [None]
  - FLUID RETENTION [None]
  - HAEMORRHOIDAL HAEMORRHAGE [None]
  - VOMITING [None]
  - HAEMATOCHEZIA [None]
  - LOSS OF CONSCIOUSNESS [None]
  - HAEMORRHAGE [None]
  - OEDEMA [None]
